FAERS Safety Report 9599861 (Version 2)
Quarter: 2013Q4

REPORT INFORMATION
  Report Type: Spontaneous
  Country: US (occurrence: US)
  Receive Date: 20131004
  Receipt Date: 20131004
  Transmission Date: 20140711
  Serious: No
  Sender: FDA-Public Use
  Company Number: US-AMGEN-USASP2013031151

PATIENT
  Age: 40 Year
  Sex: Female
  Weight: 96.15 kg

DRUGS (7)
  1. ENBREL [Suspect]
     Indication: RHEUMATOID ARTHRITIS
     Dosage: 50 MG, QWK
     Route: 058
     Dates: start: 20130325
  2. ERYTHROMYCIN [Concomitant]
     Dosage: 250 MG, UNK
  3. METHOTREXATE [Concomitant]
     Dosage: 20 MG, UNK
  4. PLAQUENIL                          /00072602/ [Concomitant]
     Dosage: 200 MG, UNK
  5. FOLIC ACID [Concomitant]
     Dosage: UNK
  6. B12                                /00056201/ [Concomitant]
     Dosage: 1 MG, UNK
  7. NABUMETONE [Concomitant]
     Dosage: 500 MG, UNK

REACTIONS (5)
  - Injection site swelling [Unknown]
  - Injection site pruritus [Unknown]
  - Injection site erythema [Unknown]
  - Pharyngitis streptococcal [Unknown]
  - Injection site mass [Unknown]
